FAERS Safety Report 9883903 (Version 1)
Quarter: 2014Q1

REPORT INFORMATION
  Report Type: Spontaneous
  Country: US (occurrence: None)
  Receive Date: 20140207
  Receipt Date: 20140207
  Transmission Date: 20141002
  Serious: Yes (Other)
  Sender: FDA-Public Use
  Company Number: None

PATIENT
  Age: 12 Month
  Sex: 0

DRUGS (6)
  1. GAMUNEX-C [Suspect]
     Indication: KAWASAKI^S DISEASE
     Route: 042
     Dates: start: 20140117, end: 20140117
  2. GAMUNEX-C [Suspect]
     Indication: KAWASAKI^S DISEASE
     Route: 042
     Dates: start: 20140118, end: 20140118
  3. ASPIRIN [Concomitant]
  4. CEFTRIAXONE [Concomitant]
  5. BENADRYL [Concomitant]
  6. TYLENOL [Concomitant]

REACTIONS (4)
  - Haemolytic anaemia [None]
  - Eyelid function disorder [None]
  - Posture abnormal [None]
  - Irritability [None]
